FAERS Safety Report 17694305 (Version 1)
Quarter: 2020Q2

REPORT INFORMATION
  Report Type: Report from Study
  Country: IN (occurrence: IN)
  Receive Date: 20200422
  Receipt Date: 20200422
  Transmission Date: 20200714
  Serious: Yes (Death)
  Sender: FDA-Public Use
  Company Number: IN-ASTRAZENECA-2020SE53563

PATIENT
  Age: 65 Year
  Sex: Male

DRUGS (8)
  1. ISORDIL S/L [Concomitant]
     Indication: CARDIAC DISORDER
     Dosage: AS REQUIRED
     Route: 048
     Dates: end: 20200110
  2. BRILINTA [Suspect]
     Active Substance: TICAGRELOR
     Indication: CARDIAC DISORDER
     Route: 048
     Dates: start: 20191105, end: 20200110
  3. NITROCONTIN [Concomitant]
     Indication: CARDIAC DISORDER
     Route: 048
     Dates: end: 20200110
  4. ATORVA [Concomitant]
     Active Substance: ATORVASTATIN
     Indication: BLOOD CHOLESTEROL
     Route: 048
     Dates: end: 20200110
  5. DYTOR [Concomitant]
     Active Substance: TORSEMIDE
     Indication: CARDIAC DISORDER
     Route: 048
     Dates: end: 20200110
  6. CLONA [Concomitant]
     Indication: ANXIETY DISORDER
     Route: 048
     Dates: end: 20200110
  7. ASPIRIN. [Concomitant]
     Active Substance: ASPIRIN
     Indication: CARDIAC DISORDER
     Route: 048
     Dates: end: 20200110
  8. CARDIVAS [Concomitant]
     Indication: BLOOD PRESSURE MEASUREMENT
     Route: 048
     Dates: end: 20200110

REACTIONS (1)
  - Death [Fatal]

NARRATIVE: CASE EVENT DATE: 20200110
